FAERS Safety Report 22585189 (Version 8)
Quarter: 2025Q1

REPORT INFORMATION
  Report Type: Report from Study
  Country: PT (occurrence: PT)
  Receive Date: 20230609
  Receipt Date: 20250305
  Transmission Date: 20250408
  Serious: Yes (Other)
  Sender: NOVARTIS
  Company Number: PT-002147023-NVSC2023PT124031

PATIENT
  Age: 36 Year
  Sex: Male

DRUGS (1)
  1. MAYZENT [Suspect]
     Active Substance: SIPONIMOD
     Indication: Multiple sclerosis
     Dosage: 2 MG, QD
     Route: 048
     Dates: start: 20220907

REACTIONS (10)
  - Leukopenia [Unknown]
  - Retinal disorder [Unknown]
  - Blepharitis [Unknown]
  - Optic disc pit [Unknown]
  - Visual field defect [Unknown]
  - Lymphocyte count decreased [Unknown]
  - Neutrophil/lymphocyte ratio increased [Unknown]
  - Lymphocyte/monocyte ratio decreased [Unknown]
  - Blood urea increased [Unknown]
  - Gamma-glutamyltransferase increased [Unknown]

NARRATIVE: CASE EVENT DATE: 20230707
